FAERS Safety Report 23683384 (Version 3)
Quarter: 2024Q2

REPORT INFORMATION
  Report Type: Spontaneous
  Country: CN (occurrence: CN)
  Receive Date: 20240328
  Receipt Date: 20240410
  Transmission Date: 20240716
  Serious: Yes (Death, Other)
  Sender: FDA-Public Use
  Company Number: CN-BoehringerIngelheim-2024-BI-017228

PATIENT
  Age: 74 Year
  Sex: Male

DRUGS (2)
  1. ALTEPLASE [Suspect]
     Active Substance: ALTEPLASE
     Indication: Cerebral infarction
     Dosage: FORM STRENGTH: 20 MILLIGRAM
     Route: 065
     Dates: start: 20240324, end: 20240324
  2. ALTEPLASE [Suspect]
     Active Substance: ALTEPLASE
     Dosage: FORM STRENGTH: 50 MILLIGRAM?MOST RECENT DOSE: 24/MAR/2024
     Route: 065
     Dates: start: 20240324, end: 20240324

REACTIONS (3)
  - Death [Fatal]
  - Brain stem haemorrhage [Unknown]
  - Blood pressure increased [Unknown]

NARRATIVE: CASE EVENT DATE: 20240324
